FAERS Safety Report 21071905 (Version 2)
Quarter: 2022Q3

REPORT INFORMATION
  Report Type: Spontaneous
  Country: JP (occurrence: JP)
  Receive Date: 20220712
  Receipt Date: 20220727
  Transmission Date: 20221026
  Serious: Yes (Hospitalization, Other)
  Sender: FDA-Public Use
  Company Number: JP-Teva Takeda Yakuhin-2022-JP-002714J

PATIENT
  Age: 87 Year
  Sex: Male

DRUGS (6)
  1. ASPIRIN\LANSOPRAZOLE [Suspect]
     Active Substance: ASPIRIN\LANSOPRAZOLE
     Indication: Thrombosis prophylaxis
     Dosage: UNK UNK, QD
     Route: 048
     Dates: start: 202108, end: 20220224
  2. POTASSIUM GLUCONATE [Suspect]
     Active Substance: POTASSIUM GLUCONATE
     Indication: Hypokalaemia
     Dosage: 2 GRAM, TID
     Route: 048
  3. MIYA-BM [Suspect]
     Active Substance: CLOSTRIDIUM BUTYRICUM SPORES STRAIN M-55
     Indication: Diarrhoea
     Dosage: UNK, TID
     Route: 048
  4. QUETIAPINE [Concomitant]
     Active Substance: QUETIAPINE
     Dosage: 25 MILLIGRAM, QD
     Route: 048
     Dates: start: 20210812
  5. ROZEREM [Concomitant]
     Active Substance: RAMELTEON
     Dosage: 8 MILLIGRAM, QD
     Route: 048
     Dates: start: 20210527
  6. DAYVIGO [Concomitant]
     Active Substance: LEMBOREXANT
     Dosage: 5 MILLIGRAM, QD
     Route: 048
     Dates: start: 20210708

REACTIONS (4)
  - Colitis microscopic [Unknown]
  - Ileus [Unknown]
  - Diarrhoea [Recovering/Resolving]
  - Diarrhoea [Recovering/Resolving]

NARRATIVE: CASE EVENT DATE: 20210909
